FAERS Safety Report 12900359 (Version 1)
Quarter: 2016Q4

REPORT INFORMATION
  Report Type: Spontaneous
  Country: US (occurrence: US)
  Receive Date: 20161031
  Receipt Date: 20161031
  Transmission Date: 20170207
  Serious: No
  Sender: FDA-Public Use
  Company Number: None

PATIENT
  Age: 53 Year
  Sex: Female

DRUGS (1)
  1. COPAXONE [Suspect]
     Active Substance: GLATIRAMER ACETATE
     Route: 058
     Dates: start: 20161006

REACTIONS (4)
  - Limb discomfort [None]
  - Asthenia [None]
  - Drug dose omission [None]
  - Intentional product use issue [None]

NARRATIVE: CASE EVENT DATE: 20161031
